FAERS Safety Report 6668325-7 (Version None)
Quarter: 2010Q2

REPORT INFORMATION
  Report Type: 
  Country: None (occurrence: None)
  Receive Date: 20100406
  Receipt Date: 20100323
  Transmission Date: 20101027
  Serious: No
  Sender: FDA-Public Use
  Company Number: US-JNJFOC-20100307299

PATIENT
  Sex: Female
  Weight: 63.5 kg

DRUGS (7)
  1. DURAGESIC-100 [Suspect]
     Indication: FLANK PAIN
     Route: 062
  2. DURAGESIC-100 [Suspect]
     Route: 062
  3. DURAGESIC-100 [Suspect]
     Route: 062
  4. DURAGESIC-100 [Suspect]
     Dosage: NDC 50458-0094-05
     Route: 062
  5. FENTANYL-100 [Suspect]
     Indication: FLANK PAIN
     Route: 062
  6. FENTANYL-100 [Suspect]
     Indication: FLANK PAIN
     Route: 062
  7. VIVELLE [Concomitant]
     Indication: HORMONE LEVEL ABNORMAL
     Route: 062

REACTIONS (3)
  - APPLICATION SITE BURN [None]
  - FLANK PAIN [None]
  - TREATMENT NONCOMPLIANCE [None]
